FAERS Safety Report 9469917 (Version 1)
Quarter: 2013Q3

REPORT INFORMATION
  Report Type: Spontaneous
  Country: US (occurrence: None)
  Receive Date: 20130820
  Receipt Date: 20130820
  Transmission Date: 20140515
  Serious: No
  Sender: FDA-Public Use
  Company Number: None

PATIENT
  Age: 41 Year
  Sex: Female

DRUGS (1)
  1. SIMPONI [Suspect]
     Dosage: INJECT 50MG (0.5ML) SUBCUTANEOUSLY ONCE MONTHLY ?50 MG/0.5ML SC
     Route: 058

REACTIONS (4)
  - Throat irritation [None]
  - Lacrimation increased [None]
  - Headache [None]
  - Nausea [None]
